FAERS Safety Report 5705457-1 (Version None)
Quarter: 2008Q2

REPORT INFORMATION
  Report Type: 
  Country: None (occurrence: None)
  Receive Date: 20080415
  Receipt Date: 20080415
  Transmission Date: 20081010
  Serious: No
  Sender: FDA-Public Use
  Company Number: None

PATIENT
  Sex: Male
  Weight: 113.4 kg

DRUGS (19)
  1. HEPARIN [Suspect]
     Dosage: 3 ML VD (BID) IV
     Route: 042
     Dates: start: 20080317, end: 20080327
  2. HEP FLUSH KIT [Suspect]
  3. HEP FLUSH KIT [Suspect]
  4. HEP FLUSH KIT [Suspect]
  5. HEP FLUSH KIT [Suspect]
  6. HEP FLUSH KIT [Suspect]
  7. HEP FLUSH KIT [Suspect]
  8. HEP FLUSH KIT [Suspect]
  9. HEP FLUSH KIT [Suspect]
  10. HEP FLUSH KIT [Suspect]
  11. HEP FLUSH KIT [Suspect]
  12. HEP FLUSH KIT [Suspect]
  13. HEP FLUSH KIT [Suspect]
  14. HEP FLUSH KIT [Suspect]
  15. HEP FLUSH KIT [Suspect]
  16. HEP FLUSH KIT [Suspect]
  17. HEP FLUSH KIT [Suspect]
  18. HEP FLUSH KIT [Suspect]
  19. ZOSYN [Concomitant]

REACTIONS (1)
  - HOSPITALISATION [None]
